FAERS Safety Report 9562492 (Version 1)
Quarter: 2013Q3

REPORT INFORMATION
  Report Type: Report from Study
  Country: FR (occurrence: FR)
  Receive Date: 20130927
  Receipt Date: 20130927
  Transmission Date: 20140515
  Serious: Yes (Other)
  Sender: FDA-Public Use
  Company Number: FR-PFIZER INC-2013276833

PATIENT
  Age: 15 Year
  Sex: Female

DRUGS (4)
  1. METHYLPREDNISOLONE SODIUM SUCCINATE [Suspect]
     Indication: INTERSTITIAL LUNG DISEASE
     Dosage: 1 G/1.73 M2 X 8
     Route: 040
  2. METHOTREXATE SODIUM [Suspect]
     Indication: INTERSTITIAL LUNG DISEASE
     Dosage: 1 MONTH
  3. MYCOPHENOLATE MOFETIL [Suspect]
     Indication: INTERSTITIAL LUNG DISEASE
     Dosage: 9 MONTHS
  4. HYDROXYCHLOROQUINE [Suspect]
     Indication: INTERSTITIAL LUNG DISEASE
     Dosage: 1 MONTH

REACTIONS (1)
  - Osteomyelitis [Unknown]
